FAERS Safety Report 8551547-8 (Version None)
Quarter: 2012Q3

REPORT INFORMATION
  Report Type: 
  Country: None (occurrence: None)
  Receive Date: 20120730
  Receipt Date: 20120724
  Transmission Date: 20120928
  Serious: Yes (Other)
  Sender: FDA-Public Use
  Company Number: US-ROCHE-1061222

PATIENT
  Sex: Male
  Weight: 95.34 kg

DRUGS (3)
  1. ACCUTANE [Suspect]
     Route: 048
     Dates: start: 20000101, end: 20000101
  2. ACCUTANE [Suspect]
     Dates: start: 20010101, end: 20010401
  3. ACCUTANE [Suspect]
     Indication: ACNE
     Route: 048
     Dates: start: 19980701, end: 19990101

REACTIONS (7)
  - COLONIC POLYP [None]
  - INTESTINAL HAEMORRHAGE [None]
  - COLITIS ULCERATIVE [None]
  - DEPRESSION [None]
  - RECTAL POLYP [None]
  - IRRITABLE BOWEL SYNDROME [None]
  - INFLAMMATORY BOWEL DISEASE [None]
